FAERS Safety Report 13770057 (Version 1)
Quarter: 2017Q3

REPORT INFORMATION
  Report Type: Spontaneous
  Country: US (occurrence: US)
  Receive Date: 20170719
  Receipt Date: 20170719
  Transmission Date: 20171127
  Serious: Yes (Hospitalization)
  Sender: FDA-Public Use
  Company Number: None

PATIENT
  Age: 44 Year
  Sex: Male
  Weight: 86 kg

DRUGS (1)
  1. LOVENOX [Suspect]
     Active Substance: ENOXAPARIN SODIUM
     Indication: THROMBOSIS PROPHYLAXIS
     Dosage: 40MG/0.4ML,  Q 24 HOURS
     Route: 058
     Dates: start: 20170329, end: 20170329

REACTIONS (3)
  - Blindness [None]
  - Infarction [None]
  - Computerised tomogram abnormal [None]

NARRATIVE: CASE EVENT DATE: 20170409
